FAERS Safety Report 17231679 (Version 1)
Quarter: 2020Q1

REPORT INFORMATION
  Report Type: Spontaneous
  Country: US (occurrence: US)
  Receive Date: 20200103
  Receipt Date: 20200103
  Transmission Date: 20200409
  Serious: Yes (Other)
  Sender: FDA-Public Use
  Company Number: US-PFIZER INC-2020000501

PATIENT
  Age: 47 Year
  Sex: Female

DRUGS (11)
  1. VITAMIN D3 [Concomitant]
     Active Substance: CHOLECALCIFEROL
     Dosage: 10000 IU, UNK
  2. PROBIOTIC 10 [Concomitant]
     Active Substance: DIETARY SUPPLEMENT\PROBIOTICS
     Dosage: UNK
  3. VITAMIN E [Concomitant]
     Active Substance: .ALPHA.-TOCOPHEROL
     Dosage: 1000 IU, UNK
  4. XANAX [Concomitant]
     Active Substance: ALPRAZOLAM
     Dosage: 0.25 MG, UNK
  5. POTASSIUM 99 [Concomitant]
     Dosage: 595 MG, UNK
  6. VITAMIN B12 [Concomitant]
     Active Substance: CYANOCOBALAMIN
     Dosage: 2500 UG, UNK
  7. PROZAC [Concomitant]
     Active Substance: FLUOXETINE HYDROCHLORIDE
     Dosage: 10 MG, UNK
  8. LETROZOLE. [Concomitant]
     Active Substance: LETROZOLE
     Dosage: 2.5 MG, UNK
  9. TURMERIC [Concomitant]
     Active Substance: HERBALS\TURMERIC
     Dosage: 400 MG, UNK
  10. IBRANCE [Suspect]
     Active Substance: PALBOCICLIB
     Indication: BREAST CANCER FEMALE
     Dosage: 100 MG, CYCLIC (1 CAP BY MOUTH; DAILY FOR 21 OUT OF 28 DAYS)
     Route: 048
  11. VITAMIN B-6 [Concomitant]
     Active Substance: PYRIDOXINE
     Dosage: 100 MG, UNK

REACTIONS (2)
  - Neutropenia [Unknown]
  - White blood cell count decreased [Unknown]
